FAERS Safety Report 7852506 (Version 8)
Quarter: 2012Q4

REPORT INFORMATION
  Report Type: 
  Country: CN (occurrence: CN)
  Receive Date: 20110311
  Receipt Date: 20121217
  Transmission Date: 20130627
  Serious: Yes (Hospitalization, Other)
  Sender: FDA-Public Use
  Company Number: PHHY2011CN15948

PATIENT
  Age: 38 None
  Sex: Male
  Weight: 77 kg

DRUGS (6)
  1. SEBIVO [Suspect]
     Indication: CHRONIC HEPATITIS B
     Dosage: 600 mg, QD
     Route: 048
     Dates: start: 20071015
  2. SEBIVO [Suspect]
     Indication: HEPATITIS B SURFACE ANTIGEN
     Dosage: 600 mg, QD
     Route: 048
     Dates: start: 200908
  3. SEBIVO [Suspect]
     Dosage: 600 mg, QD
     Route: 048
     Dates: start: 2010
  4. SEBIVO [Suspect]
     Dosage: 600 mg, QD
     Route: 048
     Dates: end: 20110220
  5. OXYGEN [Concomitant]
  6. AMINO ACIDS [Concomitant]

REACTIONS (45)
  - Gastritis [Not Recovered/Not Resolved]
  - Nausea [Unknown]
  - Abdominal pain upper [Not Recovered/Not Resolved]
  - Vomiting [Recovering/Resolving]
  - Hypophagia [Recovering/Resolving]
  - Weight decreased [Recovering/Resolving]
  - Renal impairment [Recovering/Resolving]
  - Blood urea increased [Not Recovered/Not Resolved]
  - Oliguria [Recovered/Resolved]
  - Blood uric acid increased [Not Recovered/Not Resolved]
  - Neuropathy peripheral [Recovered/Resolved]
  - Tachypnoea [Not Recovered/Not Resolved]
  - Rhabdomyolysis [Recovered/Resolved]
  - Myopathy [Unknown]
  - Muscular weakness [Not Recovered/Not Resolved]
  - Muscle atrophy [Not Recovered/Not Resolved]
  - Fatigue [Not Recovered/Not Resolved]
  - Blood creatine phosphokinase increased [Recovering/Resolving]
  - Chromaturia [Not Recovered/Not Resolved]
  - Gait disturbance [Not Recovered/Not Resolved]
  - Dysstasia [Not Recovered/Not Resolved]
  - Blood creatine phosphokinase MB increased [Not Recovered/Not Resolved]
  - Blood lactate dehydrogenase increased [Not Recovered/Not Resolved]
  - Myoglobin blood increased [Recovering/Resolving]
  - Myalgia [Not Recovered/Not Resolved]
  - Abasia [Unknown]
  - Pain in extremity [Not Recovered/Not Resolved]
  - Acid base balance abnormal [Not Recovered/Not Resolved]
  - Blood gases abnormal [Not Recovered/Not Resolved]
  - Electrolyte imbalance [Not Recovered/Not Resolved]
  - Muscle injury [Unknown]
  - Musculoskeletal stiffness [Not Recovered/Not Resolved]
  - Blood lactic acid increased [Unknown]
  - Lactic acidosis [Unknown]
  - Myositis [Unknown]
  - Chronic hepatitis B [Unknown]
  - Hepatitis B DNA increased [Unknown]
  - Aspartate aminotransferase increased [Not Recovered/Not Resolved]
  - Back pain [Unknown]
  - Hyperuricaemia [Recovered/Resolved]
  - Neuritis [Recovered/Resolved]
  - Feeling abnormal [Unknown]
  - Sleep disorder [Unknown]
  - CSF protein increased [Unknown]
  - Chest discomfort [Unknown]
